APPROVED DRUG PRODUCT: SITAGLIPTIN PHOSPHATE
Active Ingredient: SITAGLIPTIN PHOSPHATE
Strength: EQ 50MG BASE
Dosage Form/Route: TABLET;ORAL
Application: A202425 | Product #002 | TE Code: AB
Applicant: APOTEX INC
Approved: Jan 20, 2026 | RLD: No | RS: No | Type: RX